FAERS Safety Report 14980506 (Version 13)
Quarter: 2020Q2

REPORT INFORMATION
  Report Type: Spontaneous
  Country: US (occurrence: US)
  Receive Date: 20180606
  Receipt Date: 20200618
  Transmission Date: 20200713
  Serious: Yes (Hospitalization)
  Sender: FDA-Public Use
  Company Number: US-ACTELION-A-US2018-173153

PATIENT
  Age: 84 Year
  Sex: Male

DRUGS (18)
  1. DIGOXIN. [Concomitant]
     Active Substance: DIGOXIN
  2. CENTRUM [Concomitant]
     Active Substance: VITAMINS
  3. METOPROLOL. [Concomitant]
     Active Substance: METOPROLOL
  4. ELIQUIS [Concomitant]
     Active Substance: APIXABAN
  5. OPSUMIT [Suspect]
     Active Substance: MACITENTAN
     Dosage: 10 MG, QD
     Route: 048
     Dates: start: 20180518
  6. AVALIDE [Concomitant]
     Active Substance: HYDROCHLOROTHIAZIDE\IRBESARTAN
  7. MULTIVITAMIN [Concomitant]
     Active Substance: VITAMINS
  8. ALDACTONE [Concomitant]
     Active Substance: SPIRONOLACTONE
  9. FINASTERIDE. [Concomitant]
     Active Substance: FINASTERIDE
  10. CARDURA [Concomitant]
     Active Substance: DOXAZOSIN MESYLATE
  11. OPSUMIT [Suspect]
     Active Substance: MACITENTAN
     Indication: PULMONARY ARTERIAL HYPERTENSION
     Dosage: 10 MG, QD
     Route: 048
     Dates: start: 20180518
  12. ADVAIR HFA [Concomitant]
     Active Substance: FLUTICASONE PROPIONATE\SALMETEROL XINAFOATE
  13. LUMIGAN [Concomitant]
     Active Substance: BIMATOPROST
  14. SIMVASTATIN. [Concomitant]
     Active Substance: SIMVASTATIN
  15. NORVASC [Concomitant]
     Active Substance: AMLODIPINE BESYLATE
  16. ISOSORBIDE. [Concomitant]
     Active Substance: ISOSORBIDE
  17. METFORMIN [Concomitant]
     Active Substance: METFORMIN HYDROCHLORIDE
  18. GLIPIZIDE. [Concomitant]
     Active Substance: GLIPIZIDE

REACTIONS (22)
  - Cellulitis [Recovering/Resolving]
  - Abdominal pain upper [Not Recovered/Not Resolved]
  - Tricuspid valve replacement [Not Recovered/Not Resolved]
  - Productive cough [Not Recovered/Not Resolved]
  - Aortic valve disease [Recovered/Resolved]
  - Oropharyngeal pain [Not Recovered/Not Resolved]
  - Fatigue [Not Recovered/Not Resolved]
  - Asthenia [Not Recovered/Not Resolved]
  - Hospitalisation [Unknown]
  - Dyspnoea [Recovered/Resolved]
  - Cardiovascular evaluation [Not Recovered/Not Resolved]
  - Headache [Not Recovered/Not Resolved]
  - Respiratory disorder [Not Recovered/Not Resolved]
  - Haemoglobin decreased [Not Recovered/Not Resolved]
  - Hiatus hernia [Not Recovered/Not Resolved]
  - Decreased appetite [Not Recovered/Not Resolved]
  - Depression [Not Recovered/Not Resolved]
  - Bronchitis [Not Recovered/Not Resolved]
  - Pain [Not Recovered/Not Resolved]
  - Erythema [Not Recovered/Not Resolved]
  - Angina pectoris [Not Recovered/Not Resolved]
  - Product dose omission [Recovered/Resolved]

NARRATIVE: CASE EVENT DATE: 20180526
